FAERS Safety Report 21106409 (Version 1)
Quarter: 2022Q3

REPORT INFORMATION
  Report Type: Spontaneous
  Country: FR (occurrence: FR)
  Receive Date: 20220720
  Receipt Date: 20220720
  Transmission Date: 20221026
  Serious: Yes (Hospitalization)
  Sender: FDA-Public Use
  Company Number: FR-ELI_LILLY_AND_COMPANY-FR202207006533

PATIENT
  Age: 22 Year
  Sex: Male

DRUGS (3)
  1. OLANZAPINE [Suspect]
     Active Substance: OLANZAPINE
     Indication: Blood cannabinoids
     Dosage: 20 MG, UNKNOWN
     Route: 048
     Dates: start: 202110
  2. OLANZAPINE [Suspect]
     Active Substance: OLANZAPINE
     Dosage: 10 MG, UNKNOWN
     Route: 048
  3. ENOXAPARIN [Concomitant]
     Active Substance: ENOXAPARIN
     Indication: Product used for unknown indication
     Dosage: UNK UNK, BID

REACTIONS (14)
  - Thrombophlebitis [Unknown]
  - Lip swelling [Unknown]
  - Weight increased [Unknown]
  - Respiration abnormal [Unknown]
  - Facial spasm [Unknown]
  - Apathy [Unknown]
  - Hyperhidrosis [Unknown]
  - Alopecia [Unknown]
  - Loss of libido [Unknown]
  - Blood prolactin increased [Not Recovered/Not Resolved]
  - Fatigue [Unknown]
  - Pyrexia [Unknown]
  - Somnolence [Unknown]
  - Off label use [Unknown]

NARRATIVE: CASE EVENT DATE: 20211001
